FAERS Safety Report 7303354-1 (Version None)
Quarter: 2011Q1

REPORT INFORMATION
  Report Type: 
  Country: None (occurrence: None)
  Receive Date: 20110221
  Receipt Date: 20110209
  Transmission Date: 20110831
  Serious: Yes (Hospitalization, Other)
  Sender: FDA-Public Use
  Company Number: US-NOVOPROD-323148

PATIENT
  Sex: Male
  Weight: 83.9 kg

DRUGS (14)
  1. BYSTOLIC [Concomitant]
     Indication: HYPERTENSION
     Dosage: UNK
  2. ISOSORBIDE DINITRATE [Concomitant]
     Indication: HYPERTENSION
     Dosage: UNK
  3. ACTOS [Concomitant]
     Indication: TYPE 2 DIABETES MELLITUS
  4. ASPIRIN [Concomitant]
     Indication: PRODUCT USED FOR UNKNOWN INDICATION
     Dosage: 81 MG, QD
  5. GLYBURIDE [Concomitant]
     Indication: TYPE 2 DIABETES MELLITUS
  6. NOVOLOG [Suspect]
     Indication: TYPE 2 DIABETES MELLITUS
     Dosage: UNK U, QD
     Route: 058
     Dates: start: 20100801
  7. LANTUS [Concomitant]
     Indication: TYPE 2 DIABETES MELLITUS
     Dosage: 25 U, QD
     Route: 058
  8. JANUVIA [Concomitant]
     Indication: TYPE 2 DIABETES MELLITUS
  9. ONGLYZA [Concomitant]
     Indication: TYPE 2 DIABETES MELLITUS
     Dosage: UNK
  10. PREVACID [Concomitant]
     Indication: GALLBLADDER OPERATION
     Dosage: UNK
  11. HYDRALAZINE [Concomitant]
     Indication: PRODUCT USED FOR UNKNOWN INDICATION
     Dosage: 75 MG, TID
  12. CLONIDINE [Concomitant]
     Indication: HYPERTENSION
     Dosage: UNK
  13. CALCITRIOL [Concomitant]
     Indication: VITAMIN D DEFICIENCY
  14. LASIX [Concomitant]
     Indication: FLUID RETENTION
     Dosage: 60 MG, UNK

REACTIONS (3)
  - STAPHYLOCOCCAL INFECTION [None]
  - PNEUMONIA [None]
  - SKIN ULCER [None]
